FAERS Safety Report 14884246 (Version 1)
Quarter: 2018Q2

REPORT INFORMATION
  Report Type: Spontaneous
  Country: US (occurrence: US)
  Receive Date: 20180511
  Receipt Date: 20180511
  Transmission Date: 20180711
  Serious: Yes (Other)
  Sender: FDA-Public Use
  Company Number: US-IMPAX LABORATORIES, INC-2018-IPXL-01586

PATIENT
  Age: 44 Year
  Sex: Female

DRUGS (7)
  1. DEXAMETHASONE. [Suspect]
     Active Substance: DEXAMETHASONE
     Indication: BASEDOW^S DISEASE
     Dosage: 2 MG, TWICE DAILY
     Route: 065
  2. PROPRANOLOL HYDROCHLORIDE IR [Suspect]
     Active Substance: PROPRANOLOL HYDROCHLORIDE
     Indication: PRODUCT USE IN UNAPPROVED INDICATION
  3. PROPRANOLOL HYDROCHLORIDE IR [Suspect]
     Active Substance: PROPRANOLOL HYDROCHLORIDE
     Indication: BASEDOW^S DISEASE
     Dosage: 40 MG, THREE TIMES A DAY
     Route: 065
  4. L-CARNITINE [Suspect]
     Active Substance: LEVOCARNITINE
     Indication: BASEDOW^S DISEASE
     Dosage: 1 G, THREE TIMES
     Route: 065
  5. METHIMAZOLE. [Suspect]
     Active Substance: METHIMAZOLE
     Indication: BASEDOW^S DISEASE
     Dosage: 40 MG, TWICE DAILY
     Route: 065
  6. CHOLESTYRAMINE. [Suspect]
     Active Substance: CHOLESTYRAMINE
     Indication: BASEDOW^S DISEASE
     Dosage: 4 G, ONCE DAILY
     Route: 065
  7. METHIMAZOLE. [Suspect]
     Active Substance: METHIMAZOLE
     Dosage: 20 MG, DAILY
     Route: 065

REACTIONS (3)
  - Hepatic function abnormal [Recovering/Resolving]
  - Thyrotoxic crisis [Recovering/Resolving]
  - Product use in unapproved indication [Unknown]
